FAERS Safety Report 17764151 (Version 1)
Quarter: 2020Q2

REPORT INFORMATION
  Report Type: Report from Study
  Country: US (occurrence: US)
  Receive Date: 20200511
  Receipt Date: 20200511
  Transmission Date: 20200714
  Serious: Yes (Hospitalization)
  Sender: FDA-Public Use
  Company Number: US-PFIZER INC-2020183148

PATIENT
  Age: 16 Year
  Sex: Male
  Weight: 60 kg

DRUGS (11)
  1. METHOTREXATE SODIUM. [Suspect]
     Active Substance: METHOTREXATE SODIUM
     Indication: B PRECURSOR TYPE ACUTE LEUKAEMIA
     Dosage: 15 MG, ONCE
     Route: 037
     Dates: start: 20191223, end: 20200221
  2. CYTARABINE. [Suspect]
     Active Substance: CYTARABINE
     Indication: B PRECURSOR TYPE ACUTE LEUKAEMIA
     Dosage: 140 MG, ONCE, DAYS 1-4, 8-11
     Route: 042
     Dates: start: 20191223
  3. CYCLOPHOSPHAMIDE. [Suspect]
     Active Substance: CYCLOPHOSPHAMIDE
     Indication: B PRECURSOR TYPE ACUTE LEUKAEMIA
     Dosage: 1868 MG, ONCE
     Route: 042
     Dates: start: 20191223
  4. PEGASPARGASE [Suspect]
     Active Substance: PEGASPARGASE
     Dosage: 4575 INTERNATIONAL UNIT, ONCE, DAY 43
     Route: 042
     Dates: start: 20200210
  5. CYCLOPHOSPHAMIDE. [Suspect]
     Active Substance: CYCLOPHOSPHAMIDE
     Dosage: 1840 MG, ONCE
     Route: 042
     Dates: start: 20200127
  6. PEGASPARGASE [Suspect]
     Active Substance: PEGASPARGASE
     Indication: B PRECURSOR TYPE ACUTE LEUKAEMIA
     Dosage: 4650 INTERNATIONAL UNIT, ONCE, DAY 15
     Route: 042
     Dates: start: 20200106
  7. VINCRISTINE SULFATE. [Suspect]
     Active Substance: VINCRISTINE SULFATE
     Indication: B PRECURSOR TYPE ACUTE LEUKAEMIA
     Dosage: 2 MG, PUSH ONCE
     Route: 042
     Dates: start: 20200106, end: 20200221
  8. INCB018424 [Suspect]
     Active Substance: RUXOLITINIB
     Indication: B PRECURSOR TYPE ACUTE LEUKAEMIA
     Dosage: 95 MG, 2X/DAY, TABLET
     Route: 048
     Dates: start: 20191223, end: 20200206
  9. INCB018424 [Suspect]
     Active Substance: RUXOLITINIB
     Dosage: 90 MG, 2X/DAY, TABLET
     Route: 048
     Dates: start: 20200127, end: 20200221
  10. MERCAPTOPURINE. [Suspect]
     Active Substance: MERCAPTOPURINE
     Indication: B PRECURSOR TYPE ACUTE LEUKAEMIA
     Dosage: 125 MG, 1X/DAY, TABLET
     Route: 048
     Dates: start: 20191223, end: 20200221
  11. CYTARABINE. [Suspect]
     Active Substance: CYTARABINE
     Dosage: 138 MG, ONCE, DAYS 29-32, 36-39
     Route: 042
     Dates: start: 20200127

REACTIONS (1)
  - Febrile neutropenia [Not Recovered/Not Resolved]

NARRATIVE: CASE EVENT DATE: 20200221
